FAERS Safety Report 10268672 (Version 1)
Quarter: 2014Q2

REPORT INFORMATION
  Report Type: Spontaneous
  Country: US (occurrence: None)
  Receive Date: 20140627
  Receipt Date: 20140627
  Transmission Date: 20141212
  Serious: Yes (Other)
  Sender: FDA-Public Use
  Company Number: None

PATIENT
  Age: 25 Year
  Sex: Female
  Weight: 68.04 kg

DRUGS (1)
  1. NEXPLANON [Suspect]
     Indication: CONTRACEPTION

REACTIONS (12)
  - Night sweats [None]
  - Hot flush [None]
  - Abdominal pain [None]
  - Uterine haemorrhage [None]
  - Furuncle [None]
  - Visual impairment [None]
  - Vulvovaginal dryness [None]
  - Premature menopause [None]
  - Anovulatory cycle [None]
  - Pain [None]
  - Uterine disorder [None]
  - Product label issue [None]
